FAERS Safety Report 24314345 (Version 1)
Quarter: 2024Q3

REPORT INFORMATION
  Report Type: Spontaneous
  Country: US (occurrence: None)
  Receive Date: 20240913
  Receipt Date: 20240913
  Transmission Date: 20241016
  Serious: No
  Sender: ASTRAZENECA
  Company Number: 2024A193179

PATIENT
  Age: 69 Year
  Sex: Female
  Weight: 70.2 kg

DRUGS (4)
  1. TEZSPIRE [Suspect]
     Active Substance: TEZEPELUMAB-EKKO
     Dosage: 210 MG/1.91 ML EVERY FOUR WEEKS
     Route: 058
  2. TEZEPELUMAB [Suspect]
     Active Substance: TEZEPELUMAB
     Dosage: 210 MG/1.91 ML ONCE/SINGLE ADMINISTRATION
     Route: 058
  3. PROLIA [Suspect]
     Active Substance: DENOSUMAB
     Indication: Addison^s disease
  4. PROLIA [Suspect]
     Active Substance: DENOSUMAB
     Indication: Osteoporotic fracture

REACTIONS (2)
  - Blood cholesterol increased [Unknown]
  - Fatigue [Unknown]
